FAERS Safety Report 6417157-3 (Version None)
Quarter: 2009Q4

REPORT INFORMATION
  Report Type: 
  Country: None (occurrence: None)
  Receive Date: 20091027
  Receipt Date: 20091027
  Transmission Date: 20100525
  Serious: Yes (Other)
  Sender: FDA-Public Use
  Company Number: None

PATIENT
  Age: 56 Year
  Sex: Female
  Weight: 83.0083 kg

DRUGS (1)
  1. ACTONEL [Suspect]
     Indication: BODY HEIGHT DECREASED
     Dosage: ONCE-A-MONTH
     Dates: start: 20090926

REACTIONS (6)
  - BACK PAIN [None]
  - CHEST PAIN [None]
  - GAIT DISTURBANCE [None]
  - MOVEMENT DISORDER [None]
  - NECK PAIN [None]
  - PAIN IN EXTREMITY [None]
